FAERS Safety Report 14531469 (Version 2)
Quarter: 2018Q2

REPORT INFORMATION
  Report Type: Spontaneous
  Country: US (occurrence: US)
  Receive Date: 20180214
  Receipt Date: 20180403
  Transmission Date: 20180711
  Serious: Yes (Other)
  Sender: FDA-Public Use
  Company Number: US-BAYER-2018-029874

PATIENT
  Age: 26 Year
  Sex: Female
  Weight: 68.94 kg

DRUGS (1)
  1. SKYLA [Suspect]
     Active Substance: LEVONORGESTREL
     Indication: CONTRACEPTION
     Dosage: 14 MCG/24HR, CONT
     Route: 015
     Dates: start: 20171024, end: 20180212

REACTIONS (5)
  - Adnexa uteri mass [None]
  - Drug ineffective [None]
  - Ectopic pregnancy with contraceptive device [None]
  - Peritoneal haemorrhage [None]
  - Ruptured ectopic pregnancy [None]

NARRATIVE: CASE EVENT DATE: 20180211
